FAERS Safety Report 4622857-1 (Version None)
Quarter: 2005Q1

REPORT INFORMATION
  Report Type: 
  Country: None (occurrence: None)
  Receive Date: 20050330
  Receipt Date: 20050317
  Transmission Date: 20050727
  Serious: Yes (Death)
  Sender: FDA-Public Use
  Company Number: FR-GLAXOSMITHKLINE-B0375527A

PATIENT
  Age: 41 Year
  Sex: Female
  Weight: 85 kg

DRUGS (4)
  1. AUGMENTIN '125' [Suspect]
     Dosage: 2G SINGLE DOSE
     Route: 042
     Dates: start: 20050308, end: 20050308
  2. TRACRIUM [Suspect]
     Dosage: 30MG SINGLE DOSE
     Route: 042
     Dates: start: 20050308, end: 20050308
  3. DIPRIVAN [Suspect]
     Dosage: 200MG SINGLE DOSE
     Route: 042
     Dates: start: 20050308, end: 20050308
  4. SUFENTA [Suspect]
     Dosage: 25MCG SINGLE DOSE
     Route: 042
     Dates: start: 20050308, end: 20050308

REACTIONS (4)
  - ANAPHYLACTIC SHOCK [None]
  - BLOOD PRESSURE DECREASED [None]
  - BRADYCARDIA [None]
  - BRONCHOSPASM [None]
